FAERS Safety Report 4722210-6 (Version None)
Quarter: 2005Q3

REPORT INFORMATION
  Report Type: 
  Country: None (occurrence: None)
  Receive Date: 20050722
  Receipt Date: 20040902
  Transmission Date: 20060218
  Serious: No
  Sender: FDA-Public Use
  Company Number: US-GLAXOSMITHKLINE-A0524498A

PATIENT
  Age: 61 Year
  Sex: Male

DRUGS (3)
  1. AVANDIA [Suspect]
     Dosage: 4MG TWICE PER DAY
     Route: 048
     Dates: start: 20040721
  2. LOPRESSOR [Concomitant]
  3. ANTACID TAB [Concomitant]

REACTIONS (3)
  - DIARRHOEA [None]
  - MYALGIA [None]
  - NAUSEA [None]
